FAERS Safety Report 22184322 (Version 1)
Quarter: 2023Q2

REPORT INFORMATION
  Report Type: Report from Study
  Country: IE (occurrence: IE)
  Receive Date: 20230407
  Receipt Date: 20230407
  Transmission Date: 20230722
  Serious: Yes (Other)
  Sender: FDA-Public Use
  Company Number: IE-JNJFOC-20230379919

PATIENT
  Age: 82 Year
  Sex: Male

DRUGS (8)
  1. ZYTIGA [Suspect]
     Active Substance: ABIRATERONE ACETATE
     Indication: Prostate cancer metastatic
     Route: 048
     Dates: start: 20220620
  2. FUROSEMIDE [Concomitant]
     Active Substance: FUROSEMIDE
     Route: 050
  3. CALCIUM CARBONATE [Concomitant]
     Active Substance: CALCIUM CARBONATE
     Route: 050
  4. ELIQUIS [Concomitant]
     Active Substance: APIXABAN
     Route: 050
  5. NEBIVOLOL [Concomitant]
     Active Substance: NEBIVOLOL
     Route: 050
  6. OMESAR [OLMESARTAN MEDOXOMIL] [Concomitant]
     Route: 050
  7. ATORVASTATIN [Concomitant]
     Active Substance: ATORVASTATIN
     Route: 050
  8. PREDNISOLONE [Concomitant]
     Active Substance: PREDNISOLONE
     Route: 050

REACTIONS (1)
  - Urethral stenosis [Recovered/Resolved]

NARRATIVE: CASE EVENT DATE: 20230121
